FAERS Safety Report 12842036 (Version 1)
Quarter: 2016Q4

REPORT INFORMATION
  Report Type: Spontaneous
  Country: GB (occurrence: GB)
  Receive Date: 20161012
  Receipt Date: 20161012
  Transmission Date: 20170207
  Serious: Yes (Hospitalization, Other)
  Sender: FDA-Public Use
  Company Number: GB-ROCHE-1841221

PATIENT
  Age: 87 Year
  Sex: Female
  Weight: 66 kg

DRUGS (15)
  1. APIXABAN [Concomitant]
     Active Substance: APIXABAN
     Route: 065
  2. FUROSEMIDE. [Concomitant]
     Active Substance: FUROSEMIDE
     Route: 065
  3. PREDNISOLONE. [Concomitant]
     Active Substance: PREDNISOLONE
     Route: 065
  4. TOCILIZUMAB [Suspect]
     Active Substance: TOCILIZUMAB
     Indication: RHEUMATOID ARTHRITIS
     Route: 042
     Dates: start: 20160601, end: 20160824
  5. SENNA [Concomitant]
     Active Substance: SENNA LEAF\SENNOSIDES\SENNOSIDES A AND B
     Route: 065
  6. ALENDRONIC ACID [Concomitant]
     Active Substance: ALENDRONIC ACID
     Route: 065
  7. BISOPROLOL [Concomitant]
     Active Substance: BISOPROLOL
     Route: 065
  8. PERINDOPRIL [Concomitant]
     Active Substance: PERINDOPRIL
     Route: 065
  9. GTN [Concomitant]
     Active Substance: NITROGLYCERIN
     Route: 065
  10. PARACETAMOL [Concomitant]
     Active Substance: ACETAMINOPHEN
     Route: 065
  11. OMEPRAZOLE. [Concomitant]
     Active Substance: OMEPRAZOLE
     Route: 065
  12. SIMVASTATIN. [Concomitant]
     Active Substance: SIMVASTATIN
     Route: 065
  13. CALCICHEW D3 FORTE [Concomitant]
     Active Substance: CALCIUM\CHOLECALCIFEROL
     Route: 065
  14. AMLODIPINE [Concomitant]
     Active Substance: AMLODIPINE BESYLATE
     Route: 065
  15. DIGOXIN. [Concomitant]
     Active Substance: DIGOXIN
     Route: 065

REACTIONS (4)
  - Oedema peripheral [Unknown]
  - Dyspnoea [Unknown]
  - Atrial fibrillation [Unknown]
  - Cardiac failure congestive [Unknown]

NARRATIVE: CASE EVENT DATE: 20160824
